FAERS Safety Report 13049011 (Version 1)
Quarter: 2016Q4

REPORT INFORMATION
  Report Type: Spontaneous
  Country: US (occurrence: US)
  Receive Date: 20161220
  Receipt Date: 20161220
  Transmission Date: 20170207
  Serious: Yes (Death)
  Sender: FDA-Public Use
  Company Number: None

PATIENT
  Age: 95 Year
  Sex: Female

DRUGS (1)
  1. AMIODARONE [Suspect]
     Active Substance: AMIODARONE

REACTIONS (14)
  - Dyspnoea [None]
  - Gastrooesophageal reflux disease [None]
  - Toxicity to various agents [None]
  - Gait disturbance [None]
  - Arthralgia [None]
  - Asthenia [None]
  - Dizziness [None]
  - Nausea [None]
  - Small intestinal obstruction [None]
  - Chest pain [None]
  - Visual impairment [None]
  - Vision blurred [None]
  - Abdominal pain upper [None]
  - Asphyxia [None]
